FAERS Safety Report 17879741 (Version 1)
Quarter: 2020Q2

REPORT INFORMATION
  Report Type: Spontaneous
  Country: GB (occurrence: GB)
  Receive Date: 20200610
  Receipt Date: 20200610
  Transmission Date: 20200714
  Serious: Yes (Other)
  Sender: FDA-Public Use
  Company Number: GB-ACCORD-184861

PATIENT
  Age: 59 Year
  Sex: Female

DRUGS (7)
  1. ATORVASTATIN/ATORVASTATIN CALCIUM [Suspect]
     Active Substance: ATORVASTATIN CALCIUM
     Indication: PRODUCT USED FOR UNKNOWN INDICATION
     Route: 048
     Dates: start: 20200512, end: 20200524
  2. SERTRALINE ACCORD [Concomitant]
     Active Substance: SERTRALINE HYDROCHLORIDE
  3. ACETYLSALICYLIC ACID [Concomitant]
     Active Substance: ASPIRIN
  4. CINNARIZINE [Concomitant]
     Active Substance: CINNARIZINE
  5. AMLODIPINE [Concomitant]
     Active Substance: AMLODIPINE BESYLATE
  6. RAMIPRIL BRISTOL LABS [Concomitant]
  7. LANSOPRAZOLE BRISTOL LABS [Concomitant]
     Dosage: GASTRO-RESISTANT

REACTIONS (4)
  - Hypoaesthesia [Not Recovered/Not Resolved]
  - Tinnitus [Unknown]
  - Muscle spasms [Unknown]
  - Contusion [Unknown]

NARRATIVE: CASE EVENT DATE: 20200514
